FAERS Safety Report 4784699-6 (Version None)
Quarter: 2005Q3

REPORT INFORMATION
  Report Type: 
  Country: None (occurrence: None)
  Receive Date: 20050930
  Receipt Date: 20050921
  Transmission Date: 20060218
  Serious: Yes (Other)
  Sender: FDA-Public Use
  Company Number: PHBS2005US14002

PATIENT
  Age: 2 Year
  Sex: Male

DRUGS (2)
  1. ELIDEL [Suspect]
     Indication: GRAFT VERSUS HOST DISEASE
     Route: 061
  2. STEROIDS NOS [Suspect]
     Route: 061

REACTIONS (3)
  - BLOOD CREATININE INCREASED [None]
  - DRUG LEVEL INCREASED [None]
  - MENTAL STATUS CHANGES [None]
